FAERS Safety Report 8914917 (Version 2)
Quarter: 2013Q1

REPORT INFORMATION
  Report Type: Spontaneous
  Country: DE (occurrence: DE)
  Receive Date: 20121119
  Receipt Date: 20130307
  Transmission Date: 20140127
  Serious: Yes (Death, Other)
  Sender: FDA-Public Use
  Company Number: DE-ELI_LILLY_AND_COMPANY-DE201211004255

PATIENT
  Sex: Male

DRUGS (4)
  1. ALIMTA [Suspect]
     Indication: NON-SMALL CELL LUNG CANCER
     Dosage: 500 MG/M2, UNKNOWN
     Route: 042
     Dates: start: 20120701, end: 20120815
  2. CARBOPLATIN [Concomitant]
     Dosage: UNK
     Dates: start: 20120701, end: 20120815
  3. VITAMIN B12 [Concomitant]
  4. DEXAMETHASONE [Concomitant]

REACTIONS (11)
  - Mucosal inflammation [Fatal]
  - Sepsis [Fatal]
  - Aspergillus test positive [Unknown]
  - Depression [Unknown]
  - Hypophagia [Unknown]
  - Dehydration [Unknown]
  - Diarrhoea [Unknown]
  - Neutropenia [Unknown]
  - Thrombocytopenia [Unknown]
  - Off label use [Recovered/Resolved]
  - Intentional drug misuse [Unknown]
